FAERS Safety Report 5106346-6 (Version None)
Quarter: 2006Q3

REPORT INFORMATION
  Report Type: 
  Country: None (occurrence: None)
  Receive Date: 20060918
  Receipt Date: 20060907
  Transmission Date: 20061208
  Serious: Yes (Death, Other)
  Sender: FDA-Public Use
  Company Number: US-JNJFOC-20060901668

PATIENT
  Sex: Female

DRUGS (4)
  1. REMICADE [Suspect]
     Indication: RHEUMATOID ARTHRITIS
     Route: 042
  2. MOBIC [Concomitant]
  3. ARAVA [Concomitant]
  4. PREDNISONE [Concomitant]

REACTIONS (7)
  - ACUTE RESPIRATORY DISTRESS SYNDROME [None]
  - CARDIAC ARREST [None]
  - ESSENTIAL HYPERTENSION [None]
  - OSTEOARTHRITIS [None]
  - OSTEOPOROSIS [None]
  - PNEUMONIA [None]
  - RHEUMATOID ARTHRITIS [None]
